FAERS Safety Report 13511848 (Version 1)
Quarter: 2017Q2

REPORT INFORMATION
  Report Type: Spontaneous
  Country: IL (occurrence: IL)
  Receive Date: 20170504
  Receipt Date: 20170504
  Transmission Date: 20170830
  Serious: Yes (Hospitalization, Other)
  Sender: FDA-Public Use
  Company Number: IL-BRISTOL-MYERS SQUIBB COMPANY-BMS-2017-035252

PATIENT
  Age: 71 Year
  Sex: Female

DRUGS (1)
  1. ELIQUIS [Suspect]
     Active Substance: APIXABAN
     Indication: CEREBROVASCULAR ACCIDENT PROPHYLAXIS
     Dosage: 5 MG, BID
     Route: 048

REACTIONS (5)
  - Haemoglobin decreased [Unknown]
  - Upper gastrointestinal haemorrhage [Recovered/Resolved]
  - Diverticulitis [Unknown]
  - Polypectomy [Unknown]
  - Transfusion [Unknown]

NARRATIVE: CASE EVENT DATE: 20170418
